FAERS Safety Report 10435840 (Version 2)
Quarter: 2015Q1

REPORT INFORMATION
  Report Type: Spontaneous
  Country: GB (occurrence: GB)
  Receive Date: 20140908
  Receipt Date: 20150312
  Transmission Date: 20150720
  Serious: Yes (Other)
  Sender: FDA-Public Use
  Company Number: GB-JNJFOC-20140826077

PATIENT
  Age: 18 Year
  Sex: Female
  Weight: 43 kg

DRUGS (1)
  1. NORETHISTERONE [Suspect]
     Active Substance: NORETHINDRONE
     Indication: MENSTRUAL CYCLE MANAGEMENT
     Route: 048
     Dates: start: 20140727, end: 20140814

REACTIONS (13)
  - Autophobia [Recovering/Resolving]
  - Abdominal pain lower [Recovering/Resolving]
  - Listless [Recovering/Resolving]
  - Mood swings [Not Recovered/Not Resolved]
  - Anhedonia [Recovering/Resolving]
  - Product use issue [Unknown]
  - Indifference [Recovering/Resolving]
  - Depressed mood [Recovered/Resolved with Sequelae]
  - Irritability [Recovered/Resolved with Sequelae]
  - Anger [Recovering/Resolving]
  - Self-injurious ideation [Recovering/Resolving]
  - Impulse-control disorder [Recovering/Resolving]
  - Crying [Recovering/Resolving]

NARRATIVE: CASE EVENT DATE: 20140801
